FAERS Safety Report 4616025-7 (Version None)
Quarter: 2005Q1

REPORT INFORMATION
  Report Type: 
  Country: None (occurrence: None)
  Receive Date: 20050318
  Receipt Date: 20050302
  Transmission Date: 20050727
  Serious: Yes (Hospitalization)
  Sender: FDA-Public Use
  Company Number: 310001L05TUR

PATIENT
  Age: 30 Year
  Sex: Female

DRUGS (5)
  1. GONAL-F [Suspect]
     Indication: INFERTILITY FEMALE
     Dosage: 1 IN 1 ONCE
  2. PREGNYL [Suspect]
     Indication: INFERTILITY FEMALE
     Dosage: 1 IN 1 ONCE
  3. PREDNOL (METHYLPREDNISOLONE) [Suspect]
     Dosage: 16 MG, 1 IN 1 DAYS
  4. CRINONE [Suspect]
     Dosage: 8 MG, 1 IN 1 DAYS
  5. LUCRIN (LEUPRORELIN ACETATE) [Concomitant]

REACTIONS (7)
  - ASCITES [None]
  - DECREASED ACTIVITY [None]
  - DELIRIUM [None]
  - DEPRESSED LEVEL OF CONSCIOUSNESS [None]
  - DISORIENTATION [None]
  - HALLUCINATION, VISUAL [None]
  - OVARIAN HYPERSTIMULATION SYNDROME [None]
